FAERS Safety Report 19893843 (Version 7)
Quarter: 2022Q2

REPORT INFORMATION
  Report Type: Spontaneous
  Country: US (occurrence: US)
  Receive Date: 20210928
  Receipt Date: 20220510
  Transmission Date: 20220721
  Serious: Yes (Other)
  Sender: FDA-Public Use
  Company Number: US-MALLINCKRODT PHARMACEUTICALS-T202104210

PATIENT
  Sex: Female
  Weight: 89 kg

DRUGS (6)
  1. H.P. ACTHAR [Suspect]
     Active Substance: CORTICOTROPIN
     Indication: Rheumatoid arthritis
     Dosage: 40 UNITS, TWICE A WEEK
     Route: 065
     Dates: start: 20181102
  2. H.P. ACTHAR [Suspect]
     Active Substance: CORTICOTROPIN
     Dosage: 80 UNITS(1ML) TWO TIMES IN A WEEK
     Route: 058
     Dates: start: 202105, end: 2021
  3. H.P. ACTHAR [Suspect]
     Active Substance: CORTICOTROPIN
     Dosage: 0.5 MILLILITER, TWICE A WEEK
     Route: 065
     Dates: start: 2021, end: 2021
  4. H.P. ACTHAR [Suspect]
     Active Substance: CORTICOTROPIN
     Dosage: 0.5 MILLILITER, WEEKLY
     Route: 065
     Dates: start: 2021
  5. H.P. ACTHAR [Suspect]
     Active Substance: CORTICOTROPIN
     Dosage: 80 UNITS(1ML), TWO TIMES A WEEK
     Route: 058
     Dates: start: 202202, end: 202203
  6. H.P. ACTHAR [Suspect]
     Active Substance: CORTICOTROPIN
     Dosage: 0.5 MILLILITER, ONCE PER WEEK
     Route: 065
     Dates: start: 202203

REACTIONS (4)
  - Diabetes mellitus inadequate control [Not Recovered/Not Resolved]
  - Bronchitis [Unknown]
  - Nausea [Unknown]
  - Dizziness [Unknown]

NARRATIVE: CASE EVENT DATE: 20210101
